FAERS Safety Report 21102994 (Version 1)
Quarter: 2022Q3

REPORT INFORMATION
  Report Type: Spontaneous
  Country: DK (occurrence: DK)
  Receive Date: 20220720
  Receipt Date: 20220720
  Transmission Date: 20221027
  Serious: Yes (Hospitalization)
  Sender: FDA-Public Use
  Company Number: None

PATIENT
  Age: 83 Year
  Sex: Female
  Weight: 73 kg

DRUGS (1)
  1. OXYCODONE HYDROCHLORIDE [Suspect]
     Active Substance: OXYCODONE HYDROCHLORIDE
     Indication: Pain
     Dosage: DOSAGE: 5 MG PN. STRENGTH: 5 MG, DURATION : 3 DAYS
     Route: 065
     Dates: start: 20220620, end: 20220623

REACTIONS (6)
  - Confusional state [Unknown]
  - Restlessness [Unknown]
  - Hyponatriuria [Unknown]
  - Nausea [Recovered/Resolved]
  - Crying [Unknown]
  - Delirium [Unknown]

NARRATIVE: CASE EVENT DATE: 20220601
